FAERS Safety Report 14587204 (Version 2)
Quarter: 2018Q1

REPORT INFORMATION
  Report Type: Spontaneous
  Country: AR (occurrence: AR)
  Receive Date: 20180301
  Receipt Date: 20180312
  Transmission Date: 20180509
  Serious: Yes (Death, Hospitalization, Other)
  Sender: FDA-Public Use
  Company Number: AR-ELI_LILLY_AND_COMPANY-AR201802011542

PATIENT
  Sex: Male

DRUGS (8)
  1. ONDANSETRON [Concomitant]
     Active Substance: ONDANSETRON
     Indication: NAUSEA
     Dosage: UNK, EVERY 8 HRS
  2. IBUPROFEN. [Concomitant]
     Active Substance: IBUPROFEN
     Dosage: 800 MG, DAILY
  3. DEXAMETHASON                       /00016001/ [Concomitant]
     Active Substance: DEXAMETHASONE
     Dosage: 4 MG, BID
  4. CYRAMZA [Suspect]
     Active Substance: RAMUCIRUMAB
     Indication: PRODUCT USED FOR UNKNOWN INDICATION
     Dosage: 592 MG, CYCLICAL
     Route: 065
     Dates: start: 20171012
  5. RELIVERAN                          /00041901/ [Concomitant]
     Dosage: 10 MG, UNK
  6. NYSTATIN. [Concomitant]
     Active Substance: NYSTATIN
     Dosage: UNK
  7. PACLITAXEL. [Concomitant]
     Active Substance: PACLITAXEL
     Dosage: 150 MG, CYCLICAL
     Dates: start: 20171012
  8. SUCRALFATE. [Concomitant]
     Active Substance: SUCRALFATE
     Dosage: 10 ML, EVERY 8 HRS

REACTIONS (3)
  - Malignant neoplasm progression [Fatal]
  - Pyrexia [Unknown]
  - General physical health deterioration [Unknown]

NARRATIVE: CASE EVENT DATE: 201802
